FAERS Safety Report 6638894-1 (Version None)
Quarter: 2010Q1

REPORT INFORMATION
  Report Type: 
  Country: None (occurrence: None)
  Receive Date: 20100316
  Receipt Date: 20100316
  Transmission Date: 20100710
  Serious: Yes (Hospitalization)
  Sender: FDA-Public Use
  Company Number: None

PATIENT
  Age: 27 Year
  Sex: Female
  Weight: 79.8 kg

DRUGS (6)
  1. EFFIENT [Suspect]
     Indication: ACUTE MYOCARDIAL INFARCTION
     Dosage: 60 MG ONCE PO 10 MG DAILY PO CONTINUED AT DISCHARGE
     Route: 048
     Dates: start: 20091226, end: 20091226
  2. EFFIENT [Suspect]
     Indication: ACUTE MYOCARDIAL INFARCTION
     Dosage: 60 MG ONCE PO 10 MG DAILY PO CONTINUED AT DISCHARGE
     Route: 048
     Dates: start: 20091227, end: 20091230
  3. ASPIRIN [Concomitant]
  4. INTEGRILIN [Concomitant]
  5. FRAGMIN [Concomitant]
  6. COUMADIN [Concomitant]

REACTIONS (4)
  - BLOOD PRESSURE DECREASED [None]
  - HAEMATOMA [None]
  - HAEMOGLOBIN DECREASED [None]
  - RETROPERITONEAL HAEMORRHAGE [None]
